FAERS Safety Report 5068411-1 (Version None)
Quarter: 2006Q3

REPORT INFORMATION
  Report Type: 
  Country: None (occurrence: None)
  Receive Date: 20060802
  Receipt Date: 20050915
  Transmission Date: 20061208
  Serious: No
  Sender: FDA-Public Use
  Company Number: US-BRISTOL-MYERS SQUIBB COMPANY-13111505

PATIENT
  Age: 40 Year
  Sex: Male
  Weight: 85 kg

DRUGS (5)
  1. COUMADIN [Suspect]
     Dosage: TEMPORARILY INTERRUPTED PRIOR TO ANGIOGRAM
     Dates: start: 20050701
  2. ASPIRIN [Suspect]
     Dates: start: 20050801
  3. PLAVIX [Suspect]
     Dates: start: 20050801
  4. LORAZEPAM [Concomitant]
     Dates: start: 20050701
  5. ZOLOFT [Concomitant]
     Dates: start: 20050701

REACTIONS (4)
  - DIZZINESS [None]
  - HEADACHE [None]
  - HYPOAESTHESIA [None]
  - MALAISE [None]
